FAERS Safety Report 19605174 (Version 1)
Quarter: 2021Q3

REPORT INFORMATION
  Report Type: Spontaneous
  Country: IE (occurrence: IE)
  Receive Date: 20210723
  Receipt Date: 20210723
  Transmission Date: 20211014
  Serious: Yes (Hospitalization, Other)
  Sender: FDA-Public Use
  Company Number: IE-MYLANLABS-2021M1043787

PATIENT
  Age: 54 Year
  Sex: Female

DRUGS (1)
  1. CINACALCET HYDROCHLORIDE. [Suspect]
     Active Substance: CINACALCET HYDROCHLORIDE
     Indication: HYPERPARATHYROIDISM SECONDARY
     Dosage: UNK
     Route: 065

REACTIONS (3)
  - Hypopituitarism [Recovering/Resolving]
  - Parathyroid tumour benign [Unknown]
  - Pituitary tumour benign [Recovering/Resolving]
